FAERS Safety Report 5256756-1 (Version None)
Quarter: 2007Q1

REPORT INFORMATION
  Report Type: 
  Country: None (occurrence: None)
  Receive Date: 20070306
  Receipt Date: 20070223
  Transmission Date: 20070707
  Serious: Yes (Other)
  Sender: FDA-Public Use
  Company Number: US-PFIZER INC-2007015880

PATIENT
  Sex: Female
  Weight: 138.3 kg

DRUGS (4)
  1. LIPITOR [Suspect]
     Indication: BLOOD CHOLESTEROL INCREASED
  2. LISINOPRIL [Concomitant]
  3. AMARYL [Concomitant]
     Dates: start: 20030101
  4. GLUCOPHAGE XR [Concomitant]
     Dates: start: 20030101

REACTIONS (1)
  - FALL [None]
